FAERS Safety Report 5976011-1 (Version None)
Quarter: 2008Q4

REPORT INFORMATION
  Report Type: 
  Country: None (occurrence: None)
  Receive Date: 20081202
  Receipt Date: 20081125
  Transmission Date: 20090506
  Serious: Yes (Other)
  Sender: FDA-Public Use
  Company Number: PHHY2008US23845

PATIENT
  Sex: Male

DRUGS (2)
  1. LIORESAL [Suspect]
     Indication: MUSCLE SPASTICITY
     Route: 037
  2. BACLOFEN [Suspect]
     Route: 048

REACTIONS (4)
  - ABDOMINAL PAIN [None]
  - HYPERTONIA [None]
  - MUSCLE SPASTICITY [None]
  - PAIN [None]
